FAERS Safety Report 5570332-2 (Version None)
Quarter: 2007Q4

REPORT INFORMATION
  Report Type: 
  Country: None (occurrence: None)
  Receive Date: 20071221
  Receipt Date: 20071212
  Transmission Date: 20080405
  Serious: Yes (Hospitalization)
  Sender: FDA-Public Use
  Company Number: PHNU2007DE04155

PATIENT
  Age: 66 Year
  Sex: Female

DRUGS (1)
  1. RECLAST [Suspect]
     Dosage: 5 MG, ONCE/SINGLE
     Route: 042
     Dates: start: 20071127

REACTIONS (6)
  - CHILLS [None]
  - GAMMA-GLUTAMYLTRANSFERASE INCREASED [None]
  - INFLUENZA LIKE ILLNESS [None]
  - LISTLESS [None]
  - PYREXIA [None]
  - TRANSAMINASES INCREASED [None]
